FAERS Safety Report 12369274 (Version 2)
Quarter: 2016Q2

REPORT INFORMATION
  Report Type: Spontaneous
  Country: GB (occurrence: ES)
  Receive Date: 20160513
  Receipt Date: 20160603
  Transmission Date: 20160815
  Serious: Yes (Other)
  Sender: FDA-Public Use
  Company Number: GB-AUROBINDO-AUR-APL-2016-05789

PATIENT

DRUGS (4)
  1. TERBINAFINE TABLET [Suspect]
     Active Substance: TERBINAFINE
     Route: 065
     Dates: start: 20160216, end: 201603
  2. TERBINAFINE. [Suspect]
     Active Substance: TERBINAFINE
     Indication: ONYCHOMYCOSIS
     Dates: start: 2014
  3. TERBINAFINE. [Suspect]
     Active Substance: TERBINAFINE
     Dates: start: 20160216, end: 201603
  4. TERBINAFINE TABLET [Suspect]
     Active Substance: TERBINAFINE
     Indication: PRODUCT USED FOR UNKNOWN INDICATION
     Dosage: UNK
     Route: 065
     Dates: start: 2014

REACTIONS (6)
  - Deafness [Recovered/Resolved]
  - Purulent discharge [Unknown]
  - Upper respiratory tract infection [Recovered/Resolved]
  - Ageusia [Recovered/Resolved]
  - Anosmia [Recovered/Resolved]
  - Infection [Unknown]

NARRATIVE: CASE EVENT DATE: 201602
